FAERS Safety Report 20172283 (Version 2)
Quarter: 2022Q1

REPORT INFORMATION
  Report Type: Report from Study
  Country: US (occurrence: None)
  Receive Date: 20211210
  Receipt Date: 20220217
  Transmission Date: 20220423
  Serious: Yes (Hospitalization)
  Sender: FDA-Public Use
  Company Number: US-Eisai Medical Research-EC-2021-103457

PATIENT
  Age: 65 Year
  Sex: Female

DRUGS (5)
  1. LENVIMA [Suspect]
     Active Substance: LENVATINIB
     Indication: Endometrial cancer
     Route: 048
     Dates: start: 20211104, end: 20211122
  2. LENVIMA [Suspect]
     Active Substance: LENVATINIB
     Route: 048
     Dates: start: 20211201, end: 202112
  3. LENVIMA [Suspect]
     Active Substance: LENVATINIB
     Route: 048
     Dates: start: 20211209
  4. TRAMADOL [Suspect]
     Active Substance: TRAMADOL
     Indication: Abdominal pain upper
     Dosage: DOSE AND FREQUENCY UNKNOWN
     Route: 065
  5. KEYTRUDA [Concomitant]
     Active Substance: PEMBROLIZUMAB

REACTIONS (11)
  - Intra-abdominal fluid collection [Recovered/Resolved]
  - Abdominal pain upper [Recovering/Resolving]
  - Peripheral swelling [Recovered/Resolved]
  - Diarrhoea [Not Recovered/Not Resolved]
  - Fatigue [Not Recovered/Not Resolved]
  - Asthenia [Not Recovered/Not Resolved]
  - Peripheral swelling [Unknown]
  - Skin discolouration [Not Recovered/Not Resolved]
  - Blood pressure increased [Not Recovered/Not Resolved]
  - Malaise [Unknown]
  - Decreased appetite [Not Recovered/Not Resolved]

NARRATIVE: CASE EVENT DATE: 20210101
